FAERS Safety Report 26114608 (Version 1)
Quarter: 2025Q4

REPORT INFORMATION
  Report Type: Spontaneous
  Country: EU (occurrence: EU)
  Receive Date: 20251202
  Receipt Date: 20251202
  Transmission Date: 20260117
  Serious: Yes (Hospitalization)
  Sender: AIRGAS
  Company Number: EU-AFSSAPS-AVPO2025000253

PATIENT
  Sex: Male

DRUGS (1)
  1. NITROUS OXIDE [Suspect]
     Active Substance: NITROUS OXIDE
     Indication: Product used for unknown indication
     Dates: start: 20251103, end: 20251103

REACTIONS (4)
  - Metabolic encephalopathy [Recovered/Resolved]
  - Peripheral sensory neuropathy [Unknown]
  - Ataxia [Unknown]
  - Dystonia [Unknown]

NARRATIVE: CASE EVENT DATE: 20251103
